FAERS Safety Report 13909845 (Version 1)
Quarter: 2017Q3

REPORT INFORMATION
  Report Type: Spontaneous
  Country: US (occurrence: US)
  Receive Date: 20170828
  Receipt Date: 20170828
  Transmission Date: 20171127
  Serious: Yes (Hospitalization, Other)
  Sender: FDA-Public Use
  Company Number: US-ASTELLAS-2017US033896

PATIENT
  Age: 35 Year
  Sex: Female

DRUGS (4)
  1. TACROLIMUS. [Suspect]
     Active Substance: TACROLIMUS
     Indication: GRAFT VERSUS HOST DISEASE
     Dosage: UNK, UNKNOWN FREQ.
     Route: 065
  2. RUXOLITINIB [Concomitant]
     Active Substance: RUXOLITINIB
     Indication: GRAFT VERSUS HOST DISEASE
     Dosage: UNK, UNKNOWN FREQ.
     Route: 065
  3. WARFARIN [Suspect]
     Active Substance: WARFARIN
     Indication: PULMONARY EMBOLISM
     Dosage: UNK UNK, UNKNOWN FREQ.
     Route: 065
  4. RITUXIMAB. [Concomitant]
     Active Substance: RITUXIMAB
     Indication: GRAFT VERSUS HOST DISEASE
     Dosage: UNK, UNKNOWN FREQ.
     Route: 065

REACTIONS (12)
  - International normalised ratio increased [Unknown]
  - White blood cell count decreased [Unknown]
  - Off label use [Unknown]
  - Pneumonia [Unknown]
  - Blood creatinine increased [Unknown]
  - Pulmonary embolism [Unknown]
  - Cerebral haemorrhage [Recovered/Resolved]
  - Immunosuppressant drug level increased [Unknown]
  - Posterior reversible encephalopathy syndrome [Recovered/Resolved]
  - Acute respiratory failure [Recovering/Resolving]
  - Metapneumovirus infection [Unknown]
  - Platelet count decreased [Unknown]
